FAERS Safety Report 7048849-3 (Version None)
Quarter: 2010Q4

REPORT INFORMATION
  Report Type: 
  Country: None (occurrence: None)
  Receive Date: 20101018
  Receipt Date: 20101006
  Transmission Date: 20110411
  Serious: Yes (Death)
  Sender: FDA-Public Use
  Company Number: US-WYE-H18025910

PATIENT
  Sex: Male

DRUGS (3)
  1. BENEFIX [Suspect]
     Indication: FACTOR IX DEFICIENCY
     Dosage: 12000 IU PER MONTH PROPHYLACTICALLY
     Route: 042
  2. CYMBALTA [Concomitant]
     Indication: ASTHMA
     Dosage: NOT PROVIDED
     Route: 065
  3. ABILIFY [Concomitant]
     Indication: BIPOLAR DISORDER
     Dosage: NOT PROVIDED
     Route: 065

REACTIONS (1)
  - DEATH [None]
